FAERS Safety Report 8957007 (Version 1)
Quarter: 2012Q4

REPORT INFORMATION
  Report Type: Report from Study
  Country: CA (occurrence: CA)
  Receive Date: 20121210
  Receipt Date: 20121210
  Transmission Date: 20130627
  Serious: Yes (Hospitalization, Other)
  Sender: FDA-Public Use
  Company Number: CA-ROCHE-1165779

PATIENT
  Age: 40 Year
  Sex: Female
  Weight: 94 kg

DRUGS (1)
  1. OMALIZUMAB [Suspect]
     Indication: ASTHMA
     Route: 058
     Dates: start: 20060306

REACTIONS (6)
  - Respiratory fume inhalation disorder [Recovered/Resolved]
  - Nasopharyngitis [Recovered/Resolved]
  - Anaphylactic shock [Recovered/Resolved]
  - Laryngitis [Unknown]
  - Dyspnoea [Unknown]
  - Urticaria [Unknown]
